FAERS Safety Report 8414005-7 (Version None)
Quarter: 2012Q2

REPORT INFORMATION
  Report Type: 
  Country: None (occurrence: None)
  Receive Date: 20120605
  Receipt Date: 20120528
  Transmission Date: 20120825
  Serious: Yes (Other)
  Sender: FDA-Public Use
  Company Number: US-JNJFOC-20120601099

PATIENT
  Age: 47 Year
  Sex: Male

DRUGS (1)
  1. DOXORUBICIN HYDROCHLORIDE [Suspect]
     Indication: KAPOSI'S SARCOMA
     Dosage: ONCE EVERY 4-8 WEEKS
     Route: 042
     Dates: start: 20020101, end: 20050601

REACTIONS (1)
  - SQUAMOUS CELL CARCINOMA [None]
